FAERS Safety Report 21938538 (Version 4)
Quarter: 2023Q1

REPORT INFORMATION
  Report Type: Report from Study
  Country: US (occurrence: US)
  Receive Date: 20230201
  Receipt Date: 20230302
  Transmission Date: 20230417
  Serious: Yes (Other)
  Sender: FDA-Public Use
  Company Number: US-SEATTLE GENETICS-2023SGN01106

PATIENT
  Age: 41 Year
  Sex: Female

DRUGS (1)
  1. TISOTUMAB VEDOTIN [Suspect]
     Active Substance: TISOTUMAB VEDOTIN
     Indication: Cervix carcinoma
     Dosage: UNK
     Route: 065
     Dates: start: 20220203

REACTIONS (16)
  - Gastrointestinal haemorrhage [Not Recovered/Not Resolved]
  - Haematochezia [Not Recovered/Not Resolved]
  - Neuropathy peripheral [Unknown]
  - Haemorrhoids [Unknown]
  - Insomnia [Unknown]
  - Gingival pain [Unknown]
  - Nasal crusting [Not Recovered/Not Resolved]
  - Blood urine present [Unknown]
  - Gastrointestinal polyp [Unknown]
  - General physical health deterioration [Recovered/Resolved]
  - Muscle spasms [Unknown]
  - Pain in extremity [Unknown]
  - Gingival bleeding [Unknown]
  - Urinary tract infection [Unknown]
  - Epistaxis [Not Recovered/Not Resolved]
  - Diarrhoea [Unknown]

NARRATIVE: CASE EVENT DATE: 20220201
